FAERS Safety Report 23288433 (Version 1)
Quarter: 2023Q4

REPORT INFORMATION
  Report Type: Spontaneous
  Country: CN (occurrence: CN)
  Receive Date: 20231212
  Receipt Date: 20231212
  Transmission Date: 20240109
  Serious: Yes (Life-Threatening, Hospitalization, Other)
  Sender: FDA-Public Use
  Company Number: CN-PFIZER INC-PV202300196814

PATIENT
  Age: 49 Year
  Sex: Male

DRUGS (4)
  1. METHYLPREDNISOLONE SODIUM SUCCINATE [Suspect]
     Active Substance: METHYLPREDNISOLONE SODIUM SUCCINATE
     Indication: Overlap syndrome
     Dosage: 1000 MG, DAILY
     Route: 042
  2. METHYLPREDNISOLONE SODIUM SUCCINATE [Suspect]
     Active Substance: METHYLPREDNISOLONE SODIUM SUCCINATE
     Indication: Encephalitis autoimmune
     Dosage: 500 MG, DAILY
     Route: 042
  3. METHYLPREDNISOLONE SODIUM SUCCINATE [Suspect]
     Active Substance: METHYLPREDNISOLONE SODIUM SUCCINATE
     Indication: Myelin oligodendrocyte glycoprotein antibody-associated disease
  4. HUMAN IMMUNOGLOBULIN G [Suspect]
     Active Substance: HUMAN IMMUNOGLOBULIN G
     Indication: Overlap syndrome
     Dosage: 2 G/KG
     Route: 042

REACTIONS (3)
  - Drug ineffective [Unknown]
  - Condition aggravated [Recovering/Resolving]
  - Off label use [Unknown]
